FAERS Safety Report 7109673-6 (Version None)
Quarter: 2010Q4

REPORT INFORMATION
  Report Type: 
  Country: None (occurrence: None)
  Receive Date: 20101115
  Receipt Date: 20101115
  Transmission Date: 20110411
  Serious: Yes (Life-Threatening, Hospitalization)
  Sender: FDA-Public Use
  Company Number: None

PATIENT
  Age: 56 Year
  Sex: Female
  Weight: 58 kg

DRUGS (1)
  1. CARBAMAZEPINE [Suspect]
     Indication: PAIN
     Dosage: 100 MG BID PO
     Route: 048
     Dates: start: 20100823, end: 20100928

REACTIONS (1)
  - TOXIC EPIDERMAL NECROLYSIS [None]
